FAERS Safety Report 8518999 (Version 4)
Quarter: 2013Q4

REPORT INFORMATION
  Report Type: Spontaneous
  Country: US (occurrence: US)
  Receive Date: 20120418
  Receipt Date: 20131018
  Transmission Date: 20140711
  Serious: Yes (Other)
  Sender: FDA-Public Use
  Company Number: US-PFIZER INC-2012093640

PATIENT
  Age: 81 Year
  Sex: Female
  Weight: 86.17 kg

DRUGS (5)
  1. CARDURA [Suspect]
     Dosage: UNK
  2. LYRICA [Suspect]
     Indication: FIBROMYALGIA
     Dosage: 100 MG, 2X/DAY
     Route: 048
  3. LYRICA [Suspect]
     Indication: NERVE INJURY
  4. DETROL [Suspect]
     Dosage: UNK
  5. DETROL LA [Suspect]

REACTIONS (5)
  - Spinal operation [Unknown]
  - Surgery [Unknown]
  - Memory impairment [Unknown]
  - Body height decreased [Unknown]
  - Pain [Unknown]
